FAERS Safety Report 7683510-3 (Version None)
Quarter: 2011Q3

REPORT INFORMATION
  Report Type: 
  Country: None (occurrence: None)
  Receive Date: 20110815
  Receipt Date: 20110809
  Transmission Date: 20111222
  Serious: Yes (Death, Hospitalization)
  Sender: FDA-Public Use
  Company Number: FR-CELGENEUS-056-21880-11081155

PATIENT
  Sex: Female

DRUGS (6)
  1. BACTRIM DS [Concomitant]
     Indication: INFECTION PROPHYLAXIS
     Route: 048
     Dates: start: 20110127
  2. REVLIMID [Suspect]
     Indication: MULTIPLE MYELOMA
     Route: 048
     Dates: end: 20100120
  3. NEORAL [Concomitant]
     Indication: IMMUNOSUPPRESSION
     Dosage: 100 MILLIGRAM
     Route: 048
     Dates: start: 20110127
  4. CELLCEPT [Concomitant]
     Indication: IMMUNOSUPPRESSION
     Dosage: 2 GRAM
     Route: 048
     Dates: start: 20110127
  5. VALACYCLOVIR HYDROCHLORIDE [Concomitant]
     Indication: INFECTION PROPHYLAXIS
     Dosage: 2 TABLET
     Route: 048
     Dates: start: 20110127
  6. FLUCONAZOLE [Concomitant]
     Indication: INFECTION PROPHYLAXIS
     Route: 048
     Dates: start: 20110127

REACTIONS (1)
  - DIFFUSE LARGE B-CELL LYMPHOMA [None]
